FAERS Safety Report 18075601 (Version 1)
Quarter: 2020Q3

REPORT INFORMATION
  Report Type: Spontaneous
  Country: US (occurrence: US)
  Receive Date: 20200727
  Receipt Date: 20200727
  Transmission Date: 20201103
  Serious: No
  Sender: FDA-Public Use
  Company Number: US-ABBVIE-20K-163-3392137-00

PATIENT
  Age: 55 Year
  Sex: Female
  Weight: 63.5 kg

DRUGS (3)
  1. SYNTHROID [Suspect]
     Active Substance: LEVOTHYROXINE SODIUM
     Indication: PRODUCT USED FOR UNKNOWN INDICATION
     Route: 065
  2. LEVOXYL [Suspect]
     Active Substance: LEVOTHYROXINE SODIUM
     Dosage: 112MCG TABLETS ONCE A DAY BY MOUTH
     Route: 065
  3. LEVOXYL [Suspect]
     Active Substance: LEVOTHYROXINE SODIUM
     Indication: PRODUCT USED FOR UNKNOWN INDICATION
     Dosage: 112MCG TABLETS ONCE A DAY BY MOUTH
     Route: 065
     Dates: end: 2012

REACTIONS (8)
  - Abdominal discomfort [Unknown]
  - Peripheral venous disease [Unknown]
  - Heart rate irregular [Recovered/Resolved]
  - Chest pain [Recovered/Resolved]
  - Pain in extremity [Recovering/Resolving]
  - Musculoskeletal stiffness [Unknown]
  - Swelling face [Unknown]
  - Paraesthesia [Unknown]

NARRATIVE: CASE EVENT DATE: 20200504
